APPROVED DRUG PRODUCT: HUMATIN
Active Ingredient: PAROMOMYCIN SULFATE
Strength: EQ 250MG BASE
Dosage Form/Route: CAPSULE;ORAL
Application: A062310 | Product #001
Applicant: KING PHARMACEUTICALS INC SUB PFIZER INC
Approved: Approved Prior to Jan 1, 1982 | RLD: No | RS: No | Type: DISCN